FAERS Safety Report 5719969-8 (Version None)
Quarter: 2008Q2

REPORT INFORMATION
  Report Type: 
  Country: None (occurrence: None)
  Receive Date: 20080428
  Receipt Date: 20070316
  Transmission Date: 20081010
  Serious: No
  Sender: FDA-Public Use
  Company Number: US-AMGEN-US215401

PATIENT
  Age: 68 Year
  Sex: Male

DRUGS (8)
  1. SENSIPAR [Suspect]
     Indication: HYPERPARATHYROIDISM SECONDARY
     Route: 065
     Dates: start: 20051101
  2. SENSIPAR [Suspect]
     Route: 065
     Dates: start: 20060301
  3. ASPIRIN [Concomitant]
     Route: 065
  4. ATENOLOL [Concomitant]
     Route: 065
  5. RENAGEL [Concomitant]
     Route: 065
  6. LOTREL [Concomitant]
     Route: 065
  7. WARFARIN SODIUM [Concomitant]
     Route: 065
  8. CLONIDINE HCL [Concomitant]
     Route: 065

REACTIONS (1)
  - DENTAL CARIES [None]
